FAERS Safety Report 19767464 (Version 1)
Quarter: 2021Q3

REPORT INFORMATION
  Report Type: Spontaneous
  Country: US (occurrence: US)
  Receive Date: 20210830
  Receipt Date: 20210830
  Transmission Date: 20211014
  Serious: Yes (Death)
  Sender: FDA-Public Use
  Company Number: None

PATIENT
  Sex: Female
  Weight: 48.6 kg

DRUGS (5)
  1. MELPHALAN. [Suspect]
     Active Substance: MELPHALAN
     Indication: PLASMA CELL MYELOMA
     Dosage: ?          OTHER FREQUENCY:QD FOR 4/42 DAYS;?
     Route: 048
  2. FENTANYL. [Concomitant]
     Active Substance: FENTANYL
  3. HYDROCODONE BITARTRATE ER [Concomitant]
  4. CLARITIN [Concomitant]
     Active Substance: LORATADINE
  5. PREDNISONE. [Suspect]
     Active Substance: PREDNISONE
     Indication: PLASMA CELL MYELOMA
     Dosage: ?          OTHER FREQUENCY:QD ON 4/42 DAYS;?
     Route: 048

REACTIONS (1)
  - Death [None]
